FAERS Safety Report 11645155 (Version 1)
Quarter: 2015Q4

REPORT INFORMATION
  Report Type: Spontaneous
  Country: IT (occurrence: IT)
  Receive Date: 20151020
  Receipt Date: 20151020
  Transmission Date: 20160304
  Serious: Yes (Other)
  Sender: FDA-Public Use
  Company Number: PHHY2015IT125084

PATIENT
  Age: 30 Year
  Sex: Male

DRUGS (2)
  1. BENACTIV GOLA [Suspect]
     Active Substance: FLURBIPROFEN
     Indication: PHARYNGITIS
     Route: 048
  2. PARACETAMOL [Suspect]
     Active Substance: ACETAMINOPHEN
     Indication: OROPHARYNGEAL PAIN
     Route: 048

REACTIONS (4)
  - Angioedema [Recovering/Resolving]
  - Urticaria [Recovering/Resolving]
  - Laryngeal oedema [Recovering/Resolving]
  - Eye pruritus [Recovering/Resolving]

NARRATIVE: CASE EVENT DATE: 20150901
